FAERS Safety Report 12712396 (Version 1)
Quarter: 2016Q3

REPORT INFORMATION
  Report Type: Spontaneous
  Country: GB (occurrence: GB)
  Receive Date: 20160902
  Receipt Date: 20160902
  Transmission Date: 20161109
  Serious: Yes (Other)
  Sender: FDA-Public Use
  Company Number: GB-FRESENIUS KABI-FK201606022

PATIENT
  Age: 66 Year
  Sex: Male
  Weight: 79 kg

DRUGS (18)
  1. CALCIUM GLUCONATE. [Concomitant]
     Active Substance: CALCIUM GLUCONATE
  2. NOREPINEPHRINE [Concomitant]
     Active Substance: NOREPINEPHRINE\NOREPINEPHRINE BITARTRATE
  3. CIPROFLOXACIN. [Concomitant]
     Active Substance: CIPROFLOXACIN
  4. ORAMORPH [Concomitant]
     Active Substance: MORPHINE SULFATE
  5. PABRINEX [Concomitant]
  6. SENNA EXTRACT [Concomitant]
  7. GENTAMICIN. [Concomitant]
     Active Substance: GENTAMICIN
  8. FLUCLOXACILLIN [Concomitant]
     Active Substance: FLUCLOXACILLIN
  9. HUMAN INSULIN (PRB) [Concomitant]
  10. MAGNESIUM SULPHATE [Concomitant]
     Active Substance: MAGNESIUM SULFATE
  11. CLINDAMYCIN [Concomitant]
     Active Substance: CLINDAMYCIN\CLINDAMYCIN PHOSPHATE
  12. DALTEPARIN [Concomitant]
     Active Substance: DALTEPARIN
  13. OXYCODONE [Concomitant]
     Active Substance: OXYCODONE
  14. PARACETAMOL [Concomitant]
     Active Substance: ACETAMINOPHEN
  15. LINEZOLID (MANUFACTURER UNKNOWN) [Suspect]
     Active Substance: LINEZOLID
     Indication: NECROTISING FASCIITIS
     Route: 042
     Dates: start: 20160811, end: 20160812
  16. TEICOPLANIN [Concomitant]
     Active Substance: TEICOPLANIN
  17. METRONIDAZOLE. [Concomitant]
     Active Substance: METRONIDAZOLE
  18. MOVICOL [Concomitant]
     Active Substance: POLYETHYLENE GLYCOL 3350\POTASSIUM CHLORIDE\SODIUM BICARBONATE\SODIUM CHLORIDE

REACTIONS (3)
  - Discomfort [Not Recovered/Not Resolved]
  - Pruritus [Not Recovered/Not Resolved]
  - Rash maculo-papular [Recovering/Resolving]

NARRATIVE: CASE EVENT DATE: 20160812
